FAERS Safety Report 8221940 (Version 4)
Quarter: 2013Q3

REPORT INFORMATION
  Report Type: Report from Study
  Country: JP (occurrence: JP)
  Receive Date: 20111102
  Receipt Date: 20130703
  Transmission Date: 20140515
  Serious: Yes (Hospitalization, Other)
  Sender: FDA-Public Use
  Company Number: PHHY2011JP95677

PATIENT
  Age: 75 Year
  Sex: Female
  Weight: 62 kg

DRUGS (11)
  1. AMARYL [Concomitant]
     Dosage: 2 MG
     Route: 048
  2. NELBIS [Concomitant]
     Dosage: 500 MG
     Route: 048
  3. NORVASC [Concomitant]
     Dosage: 5 MG
     Route: 048
  4. OLMETEC [Concomitant]
     Dosage: 20 MG
     Route: 048
  5. PROMAC [Concomitant]
     Indication: PROPHYLAXIS
     Dosage: 150 MG
     Route: 048
     Dates: start: 20110630
  6. LACTEC [Concomitant]
     Dosage: 1500 ML
     Route: 041
     Dates: start: 20110603, end: 20110607
  7. FLAVITAN [Concomitant]
     Indication: PROPHYLAXIS
     Dosage: 30 MG
     Route: 048
     Dates: start: 20110418
  8. AFINITOR [Suspect]
     Indication: METASTATIC RENAL CELL CARCINOMA
     Dosage: 10 MG,DAILY
     Route: 048
     Dates: start: 20110409
  9. AFINITOR [Suspect]
     Dosage: 5 MG, DAILY
     Route: 048
     Dates: start: 20110419, end: 20110727
  10. APIDRA [Concomitant]
     Dates: start: 20110526
  11. THYRADIN [Concomitant]
     Dosage: 50 UG
     Route: 048
     Dates: start: 20110113

REACTIONS (12)
  - Glucose tolerance increased [Recovered/Resolved]
  - Pneumonitis [Recovering/Resolving]
  - Hypoxia [Unknown]
  - Cough [Recovering/Resolving]
  - Pyrexia [Not Recovered/Not Resolved]
  - Dyspnoea [Not Recovered/Not Resolved]
  - Anaemia [Recovered/Resolved]
  - Decreased appetite [Not Recovered/Not Resolved]
  - Metastatic renal cell carcinoma [Recovering/Resolving]
  - Malignant neoplasm progression [Recovering/Resolving]
  - Gamma-glutamyltransferase increased [Recovered/Resolved]
  - Blood alkaline phosphatase increased [Recovering/Resolving]
